FAERS Safety Report 4624182-1 (Version None)
Quarter: 2005Q1

REPORT INFORMATION
  Report Type: 
  Country: None (occurrence: None)
  Receive Date: 20050331
  Receipt Date: 20050322
  Transmission Date: 20050727
  Serious: Yes (Hospitalization)
  Sender: FDA-Public Use
  Company Number: 2005/00039

PATIENT
  Age: 31 Year
  Sex: Male

DRUGS (6)
  1. CIBLOR [Suspect]
     Indication: TONSILLITIS
     Dosage: 2G PER DAY
     Route: 048
     Dates: end: 20030202
  2. AOTAL [Suspect]
     Dosage: 3TAB PER DAY
     Route: 048
     Dates: start: 20030127, end: 20030202
  3. TEGRETOL [Suspect]
     Dosage: 200MG PER DAY
     Route: 048
     Dates: start: 20030115, end: 20030202
  4. TEGRETOL [Suspect]
     Dosage: 400MG PER DAY
     Route: 048
     Dates: start: 20030116, end: 20030202
  5. SURGAM [Suspect]
     Dosage: 2TAB PER DAY
     Route: 048
     Dates: start: 19980101, end: 20030202
  6. RISPERDAL [Suspect]
     Dosage: 1MG PER DAY
     Route: 048
     Dates: start: 19980101, end: 20030202

REACTIONS (9)
  - BLISTER [None]
  - CONJUNCTIVITIS [None]
  - ERYTHEMA [None]
  - LIP EROSION [None]
  - MUCOSAL ULCERATION [None]
  - PAIN [None]
  - PYREXIA [None]
  - STEVENS-JOHNSON SYNDROME [None]
  - TONSILLITIS [None]
